FAERS Safety Report 8211371-2 (Version None)
Quarter: 2012Q1

REPORT INFORMATION
  Report Type: 
  Country: None (occurrence: None)
  Receive Date: 20120315
  Receipt Date: 20120302
  Transmission Date: 20120608
  Serious: Yes (Other)
  Sender: FDA-Public Use
  Company Number: DE-CELGENEUS-062-C5013-12022913

PATIENT
  Age: 77 Year
  Sex: Female

DRUGS (8)
  1. THALIDOMIDE [Suspect]
     Indication: MULTIPLE MYELOMA
     Dosage: 100 MILLIGRAM
     Route: 048
     Dates: start: 20090929
  2. MELPHALAN HYDROCHLORIDE [Suspect]
     Route: 065
     Dates: end: 20110107
  3. REVLIMID [Suspect]
     Route: 048
     Dates: start: 20110930
  4. PREDNISONE TAB [Suspect]
     Route: 065
     Dates: end: 20110107
  5. MELPHALAN HYDROCHLORIDE [Suspect]
     Indication: MULTIPLE MYELOMA
     Route: 065
     Dates: start: 20090929
  6. PREDNISONE TAB [Suspect]
     Indication: MULTIPLE MYELOMA
     Route: 065
     Dates: start: 20090929
  7. THALIDOMIDE [Suspect]
     Dosage: 50 MILLIGRAM
     Route: 048
     Dates: end: 20110214
  8. DEXAMETHASONE [Concomitant]
     Route: 065
     Dates: start: 20110930

REACTIONS (1)
  - ACUTE MYELOID LEUKAEMIA [None]
